FAERS Safety Report 9467089 (Version 1)
Quarter: 2013Q3

REPORT INFORMATION
  Report Type: Spontaneous
  Country: US (occurrence: US)
  Receive Date: 20130820
  Receipt Date: 20130820
  Transmission Date: 20140515
  Serious: Yes (Other)
  Sender: FDA-Public Use
  Company Number: US-WATSON-2013-14361

PATIENT
  Age: 85 Year
  Sex: Male
  Weight: 68 kg

DRUGS (1)
  1. RAPAFLO (WATSON LABORATORIES) [Suspect]
     Indication: BENIGN PROSTATIC HYPERPLASIA
     Dosage: 8 MG, DAILY
     Route: 048
     Dates: start: 201307

REACTIONS (2)
  - Weight decreased [Not Recovered/Not Resolved]
  - Balance disorder [Recovered/Resolved]
